FAERS Safety Report 18314996 (Version 1)
Quarter: 2020Q3

REPORT INFORMATION
  Report Type: Other
  Country: TW (occurrence: TW)
  Receive Date: 20200925
  Receipt Date: 20200925
  Transmission Date: 20201103
  Serious: Yes (Hospitalization)
  Sender: FDA-Public Use
  Company Number: TW-B.BRAUN MEDICAL INC.-2091194

PATIENT
  Age: 48 Year
  Sex: Female

DRUGS (1)
  1. SODIUM CHLORIDE INJECTION USP 0264?7800?09 [Suspect]
     Active Substance: SODIUM CHLORIDE
     Indication: UTERINE IRRIGATION
     Route: 015

REACTIONS (2)
  - Oedema [Recovering/Resolving]
  - Dyspnoea [Recovering/Resolving]
